FAERS Safety Report 5517846-9 (Version None)
Quarter: 2007Q4

REPORT INFORMATION
  Report Type: 
  Country: None (occurrence: None)
  Receive Date: 20071113
  Receipt Date: 20071106
  Transmission Date: 20080405
  Serious: No
  Sender: FDA-Public Use
  Company Number: 163-20785-07101278

PATIENT
  Age: 55 Year
  Sex: Male

DRUGS (3)
  1. THALOMID [Suspect]
     Indication: MULTIPLE MYELOMA
     Dosage: DOSE RANGE FROM 200-400 MG QD, ORAL; 200 MG, 1 IN 1 D, ORAL
     Route: 048
     Dates: start: 20021101, end: 20070301
  2. THALOMID [Suspect]
     Indication: MULTIPLE MYELOMA
     Dosage: DOSE RANGE FROM 200-400 MG QD, ORAL; 200 MG, 1 IN 1 D, ORAL
     Route: 048
     Dates: start: 20071024
  3. ZOMETA [Suspect]
     Indication: DRUG USE FOR UNKNOWN INDICATION

REACTIONS (2)
  - OSTEONECROSIS [None]
  - PAIN IN JAW [None]
